FAERS Safety Report 11267635 (Version 1)
Quarter: 2015Q3

REPORT INFORMATION
  Report Type: Spontaneous
  Country: SE (occurrence: SE)
  Receive Date: 20150713
  Receipt Date: 20150713
  Transmission Date: 20151125
  Serious: Yes (Life-Threatening, Hospitalization, Disabling, Other)
  Sender: FDA-Public Use
  Company Number: SE-GLAXOSMITHKLINE-SE2015098920

PATIENT
  Age: 71 Year
  Sex: Female

DRUGS (2)
  1. VOXRA [Suspect]
     Active Substance: BUPROPION HYDROCHLORIDE
     Indication: DEPRESSION
     Route: 048
     Dates: start: 20150313, end: 20150617
  2. VOXRA [Suspect]
     Active Substance: BUPROPION HYDROCHLORIDE
     Indication: ANXIETY
     Dosage: UNK
     Route: 048
     Dates: start: 20150617, end: 20150619

REACTIONS (1)
  - Stress cardiomyopathy [Unknown]

NARRATIVE: CASE EVENT DATE: 20150520
